FAERS Safety Report 13001493 (Version 2)
Quarter: 2016Q4

REPORT INFORMATION
  Report Type: Spontaneous
  Country: JP (occurrence: JP)
  Receive Date: 20161206
  Receipt Date: 20161212
  Transmission Date: 20170207
  Serious: Yes (Other)
  Sender: FDA-Public Use
  Company Number: PHJP2016JP035193

PATIENT
  Age: 62 Year
  Sex: Male

DRUGS (2)
  1. TAXOTERE [Suspect]
     Active Substance: DOCETAXEL
     Indication: PROSTATE CANCER METASTATIC
     Dosage: UNK
     Route: 065
     Dates: start: 200709, end: 201201
  2. ZOLEDRONATE [Suspect]
     Active Substance: ZOLEDRONIC ACID
     Indication: METASTASES TO BONE
     Dosage: UNK
     Route: 065
     Dates: start: 200709, end: 201201

REACTIONS (7)
  - Dental fistula [Unknown]
  - Trismus [Unknown]
  - Osteonecrosis of jaw [Unknown]
  - Exposed bone in jaw [Recovered/Resolved]
  - Primary sequestrum [Unknown]
  - Secretion discharge [Unknown]
  - Subcutaneous abscess [Unknown]

NARRATIVE: CASE EVENT DATE: 201001
